FAERS Safety Report 17741057 (Version 1)
Quarter: 2020Q2

REPORT INFORMATION
  Report Type: Report from Study
  Country: EG (occurrence: EG)
  Receive Date: 20200504
  Receipt Date: 20200504
  Transmission Date: 20200714
  Serious: Yes (Other)
  Sender: FDA-Public Use
  Company Number: NVSC2020EG116595

PATIENT
  Age: 68 Year
  Sex: Female

DRUGS (4)
  1. KETOLAC [Concomitant]
     Active Substance: KETOROLAC TROMETHAMINE
     Indication: OSTEOARTHRITIS
     Dosage: UNK
     Route: 065
  2. AROMASIN [Concomitant]
     Active Substance: EXEMESTANE
     Indication: PRODUCT USED FOR UNKNOWN INDICATION
     Dosage: 1 DF, QD
     Route: 065
  3. KISQALI [Suspect]
     Active Substance: RIBOCICLIB
     Indication: BREAST CANCER
     Dosage: 3 DF, QD
     Route: 048
  4. ELTROXIN [Concomitant]
     Active Substance: LEVOTHYROXINE
     Indication: PRODUCT USED FOR UNKNOWN INDICATION
     Dosage: UNK
     Route: 065

REACTIONS (7)
  - Decreased appetite [Not Recovered/Not Resolved]
  - Dyspnoea [Not Recovered/Not Resolved]
  - Osteoporosis [Recovering/Resolving]
  - Decreased immune responsiveness [Recovered/Resolved]
  - Fatigue [Not Recovered/Not Resolved]
  - Haemoglobin decreased [Recovered/Resolved]
  - Chills [Unknown]

NARRATIVE: CASE EVENT DATE: 202001
